FAERS Safety Report 12927672 (Version 1)
Quarter: 2016Q4

REPORT INFORMATION
  Report Type: Spontaneous
  Country: US (occurrence: US)
  Receive Date: 20161109
  Receipt Date: 20161109
  Transmission Date: 20170207
  Serious: Yes (Hospitalization)
  Sender: FDA-Public Use
  Company Number: None

PATIENT
  Age: 65 Year
  Sex: Female
  Weight: 114 kg

DRUGS (8)
  1. EMEND [Concomitant]
     Active Substance: APREPITANT
  2. OXALIPLATIN. [Suspect]
     Active Substance: OXALIPLATIN
     Indication: COLON CANCER
     Dosage: OTHER FREQUENCY:2 WEEKS; INTRAVENOUS DRIP; 95 MG?
     Route: 041
  3. ALOXI [Concomitant]
     Active Substance: PALONOSETRON HYDROCHLORIDE
  4. DEXAMETHASONE. [Concomitant]
     Active Substance: DEXAMETHASONE
  5. LEUCOVORIN. [Concomitant]
     Active Substance: LEUCOVORIN
  6. ANTIEMETICS [Concomitant]
     Active Substance: UNSPECIFIED INGREDIENT
  7. FLUOROURACIL. [Concomitant]
     Active Substance: FLUOROURACIL
  8. OXALIPLATIN INJECTION [Suspect]
     Active Substance: OXALIPLATIN
     Indication: COLON CANCER
     Dosage: OTHER FREQUENCY:2 WEEKS; INTRAVENOUS DRIP; 2 HOUR?
     Route: 041

REACTIONS (3)
  - Hypersensitivity [None]
  - Chest pain [None]
  - Dyspnoea [None]

NARRATIVE: CASE EVENT DATE: 20161107
